FAERS Safety Report 7105993-X (Version None)
Quarter: 2010Q4

REPORT INFORMATION
  Report Type: 
  Country: None (occurrence: None)
  Receive Date: 20101116
  Receipt Date: 20101115
  Transmission Date: 20110411
  Serious: Yes (Death, Other)
  Sender: FDA-Public Use
  Company Number: AT-BRISTOL-MYERS SQUIBB COMPANY-15342918

PATIENT
  Age: 74 Year
  Sex: Female

DRUGS (5)
  1. ONGLYZA [Suspect]
     Indication: TYPE 2 DIABETES MELLITUS
     Route: 048
     Dates: start: 20100701, end: 20101020
  2. GLICLAZIDE [Concomitant]
     Indication: TYPE 2 DIABETES MELLITUS
     Dates: start: 20100101
  3. METFORMIN [Concomitant]
     Indication: TYPE 2 DIABETES MELLITUS
     Dates: start: 20100101
  4. SIMVASTATIN [Concomitant]
  5. LISINOPRIL [Concomitant]
     Dosage: 1 DF:20/25MG

REACTIONS (4)
  - CHOLESTASIS [None]
  - HEPATIC ENZYME INCREASED [None]
  - METASTASES TO LIVER [None]
  - PANCREATIC CARCINOMA [None]
